FAERS Safety Report 14672701 (Version 2)
Quarter: 2018Q1

REPORT INFORMATION
  Report Type: Report from Study
  Country: JP (occurrence: JP)
  Receive Date: 20180323
  Receipt Date: 20180330
  Transmission Date: 20180509
  Serious: Yes (Hospitalization, Other)
  Sender: FDA-Public Use
  Company Number: JP-ASTRAZENECA-2018SE34767

PATIENT
  Age: 23418 Day
  Sex: Male

DRUGS (14)
  1. ZOLPIDEM TARTRATE. [Concomitant]
     Active Substance: ZOLPIDEM TARTRATE
     Indication: INSOMNIA
     Route: 048
  2. GOSERELIN ACETATE [Concomitant]
     Active Substance: GOSERELIN ACETATE
     Indication: PROSTATE CANCER
     Dosage: EVERY 3 MONTH
     Route: 058
  3. DIFULUCORTOLONE VALERATE LIDOCAONE [Concomitant]
     Indication: HAEMORRHOIDS
     Dosage: AS REQUIRED
     Route: 061
     Dates: start: 20180205
  4. CARBAZOCHROME SODIUM SULFONATE [Concomitant]
     Active Substance: CARBAZOCHROME SODIUM SULFONATE
     Indication: GASTROENTERITIS RADIATION
     Dosage: 250.0ML AS REQUIRED
     Route: 048
     Dates: start: 20180309
  5. SILODOSIN [Concomitant]
     Active Substance: SILODOSIN
     Indication: DYSURIA
     Route: 048
  6. CELECOXIB. [Concomitant]
     Active Substance: CELECOXIB
     Indication: PERINEAL PAIN
     Route: 048
  7. DOMPERIDONE [Concomitant]
     Active Substance: DOMPERIDONE
     Indication: NAUSEA
     Route: 048
  8. HYDROCORTISONE BUTYRATE. [Concomitant]
     Active Substance: HYDROCORTISONE BUTYRATE
     Indication: HAEMORRHOIDS
     Dosage: AS REQUIRED
     Route: 048
  9. BETAMETHASONE VALERATE. [Concomitant]
     Active Substance: BETAMETHASONE VALERATE
     Indication: RASH
     Dosage: AS REQUIRED
     Route: 061
  10. ENSURE [Concomitant]
     Active Substance: AMINO ACIDS\DEXTROSE\ELECTROLYTES NOS\SOYBEAN OIL\VITAMINS
     Indication: DECREASED APPETITE
     Dosage: 250.0ML AS REQUIRED
     Route: 048
     Dates: start: 20180112
  11. OLAPARIB. [Suspect]
     Active Substance: OLAPARIB
     Indication: HORMONE-REFRACTORY PROSTATE CANCER
     Route: 048
     Dates: start: 20170915
  12. FAMOTIDINE. [Concomitant]
     Active Substance: FAMOTIDINE
     Indication: PROPHYLAXIS
     Route: 048
  13. MAGNESIUM OXIDE. [Concomitant]
     Active Substance: MAGNESIUM OXIDE
     Indication: CONSTIPATION
     Route: 048
  14. DIFULUCORTOLONE VALERATE LIDOCAONE [Concomitant]
     Indication: HAEMORRHOIDS
     Dosage: AS REQUIRED
     Route: 061
     Dates: start: 20180116

REACTIONS (2)
  - Bladder tamponade [Not Recovered/Not Resolved]
  - Anaemia [Recovered/Resolved]

NARRATIVE: CASE EVENT DATE: 20180309
